FAERS Safety Report 6919075-0 (Version None)
Quarter: 2010Q3

REPORT INFORMATION
  Report Type: 
  Country: None (occurrence: None)
  Receive Date: 20100727
  Receipt Date: 20071005
  Transmission Date: 20110219
  Serious: Yes (Other)
  Sender: FDA-Public Use
  Company Number: CAR-2007-040

PATIENT
  Age: 54 Year
  Sex: Male

DRUGS (1)
  1. CARAFATE [Suspect]

REACTIONS (1)
  - BLOOD GLUCOSE INCREASED [None]
